FAERS Safety Report 6698844-9 (Version None)
Quarter: 2010Q2

REPORT INFORMATION
  Report Type: 
  Country: None (occurrence: None)
  Receive Date: 20100427
  Receipt Date: 20100423
  Transmission Date: 20101027
  Serious: Yes (Other)
  Sender: FDA-Public Use
  Company Number: PHHY2010JP17732

PATIENT
  Sex: Female

DRUGS (11)
  1. COMTAN [Suspect]
     Indication: DRUG EFFECT DECREASED
     Dosage: 300 MG DAILY
     Route: 048
     Dates: start: 20080811, end: 20100323
  2. MENESIT [Suspect]
     Indication: PARKINSON'S DISEASE
     Dosage: 400 MG DAILY (150MG IN THE MORNING, 150MG IN THE DAYTIME AND 100MG IN THE EVENING)
     Route: 048
     Dates: start: 20070101, end: 20100124
  3. MENESIT [Suspect]
     Dosage: 600 MG DAILY
     Route: 048
     Dates: start: 20100125, end: 20100201
  4. MENESIT [Suspect]
     Dosage: 500 MG DAILY
     Route: 048
     Dates: start: 20100201
  5. AMITRIPTYLINE HCL [Suspect]
     Indication: DEPRESSION
     Dosage: 40 MG DAILY
     Route: 048
     Dates: start: 20070101
  6. PURSENNID [Concomitant]
     Indication: CONSTIPATION
     Dosage: 36 MG
     Route: 048
  7. METHYCOBAL [Concomitant]
     Indication: HYPOAESTHESIA
     Dosage: 1.5 ?G
     Route: 048
  8. POLLAKISU [Concomitant]
     Indication: POLLAKIURIA
     Dosage: 4 MG
     Route: 048
  9. FERROMIA [Concomitant]
     Indication: ANAEMIA
     Dosage: 200 MG
     Route: 048
  10. RESMIT [Concomitant]
     Indication: DEPRESSION
     Dosage: 20 MG
     Route: 048
  11. SENNA LIQUID EXTRACT [Concomitant]
     Indication: DEPRESSION
     Dosage: 80 MG
     Route: 048

REACTIONS (7)
  - ANXIETY [None]
  - CHILLS [None]
  - DYSKINESIA [None]
  - FLUSHING [None]
  - HYPERREFLEXIA [None]
  - SEROTONIN SYNDROME [None]
  - TREMOR [None]
